FAERS Safety Report 7384062-8 (Version None)
Quarter: 2011Q1

REPORT INFORMATION
  Report Type: 
  Country: None (occurrence: None)
  Receive Date: 20110330
  Receipt Date: 20110318
  Transmission Date: 20110831
  Serious: Yes (Hospitalization)
  Sender: FDA-Public Use
  Company Number: A0734847A

PATIENT
  Age: 47 Year
  Sex: Male
  Weight: 109.1 kg

DRUGS (7)
  1. AVANDIA [Suspect]
     Indication: DIABETES MELLITUS
     Dosage: 8MG PER DAY
     Route: 048
     Dates: start: 20011005, end: 20051101
  2. LANTUS [Concomitant]
  3. GLUCOPHAGE [Concomitant]
  4. PAXIL [Concomitant]
  5. ZYPREXA [Concomitant]
  6. WELLBUTRIN [Concomitant]
  7. PROZAC [Concomitant]

REACTIONS (8)
  - MYOCARDIAL INFARCTION [None]
  - PULMONARY HYPERTENSION [None]
  - CARDIOMYOPATHY [None]
  - CORONARY ARTERY DISEASE [None]
  - CARDIAC DISORDER [None]
  - CORONARY ARTERY OCCLUSION [None]
  - HYPERCHOLESTEROLAEMIA [None]
  - CARDIAC FAILURE CONGESTIVE [None]
